FAERS Safety Report 24052716 (Version 2)
Quarter: 2024Q3

REPORT INFORMATION
  Report Type: Spontaneous
  Country: US (occurrence: US)
  Receive Date: 20240705
  Receipt Date: 20240721
  Transmission Date: 20241016
  Serious: Yes (Other)
  Sender: TEVA
  Company Number: US-TEVA-VS-3212258

PATIENT
  Age: 38 Year
  Sex: Female

DRUGS (11)
  1. CAPECITABINE [Suspect]
     Active Substance: CAPECITABINE
     Indication: Mucinous breast carcinoma
     Route: 065
  2. GOSERELIN [Suspect]
     Active Substance: GOSERELIN
     Indication: Mucinous breast carcinoma
     Route: 065
  3. LAPATINIB [Suspect]
     Active Substance: LAPATINIB
     Indication: Mucinous breast carcinoma
     Route: 065
  4. ZOMETA [Concomitant]
     Active Substance: ZOLEDRONIC ACID
     Indication: Supportive care
     Route: 065
  5. ANASTROZOLE [Suspect]
     Active Substance: ANASTROZOLE
     Indication: Mucinous breast carcinoma
     Route: 065
  6. ADO-TRASTUZUMAB EMTANSINE [Suspect]
     Active Substance: ADO-TRASTUZUMAB EMTANSINE
     Indication: Mucinous breast carcinoma
     Route: 065
  7. TRASTUZUMAB [Suspect]
     Active Substance: TRASTUZUMAB
     Indication: Mucinous breast carcinoma
     Route: 065
  8. DOCETAXEL [Suspect]
     Active Substance: DOCETAXEL\DOCETAXEL ANHYDROUS
     Indication: Mucinous breast carcinoma
     Route: 065
  9. GEMCITABINE HYDROCHLORIDE [Concomitant]
     Active Substance: GEMCITABINE HYDROCHLORIDE
     Indication: Mucinous breast carcinoma
     Route: 065
  10. TAMOXIFEN [Suspect]
     Active Substance: TAMOXIFEN
     Indication: Mucinous breast carcinoma
     Route: 065
  11. NERATINIB [Concomitant]
     Active Substance: NERATINIB
     Indication: Mucinous breast carcinoma
     Route: 065

REACTIONS (2)
  - Palmar-plantar erythrodysaesthesia syndrome [Recovered/Resolved]
  - Drug ineffective [Unknown]
